FAERS Safety Report 8570798-X (Version None)
Quarter: 2012Q3

REPORT INFORMATION
  Report Type: 
  Country: None (occurrence: None)
  Receive Date: 20120806
  Receipt Date: 20120725
  Transmission Date: 20120928
  Serious: Yes (Hospitalization)
  Sender: FDA-Public Use
  Company Number: BR-BRISTOL-MYERS SQUIBB COMPANY-16824849

PATIENT
  Age: 54 Year
  Sex: Female

DRUGS (4)
  1. CLONIDINE HYDROCHLORIDE [Concomitant]
     Dosage: TABLET.
  2. METFORMIN HCL [Suspect]
     Indication: INSULIN RESISTANCE
     Dates: start: 20110701
  3. BENICAR HCT [Concomitant]
     Indication: HYPERTENSION
     Dosage: 2 PILL
  4. METFORMIN HCL [Suspect]
     Indication: GLUCOSE TOLERANCE IMPAIRED
     Dates: start: 20110701

REACTIONS (3)
  - BRONCHOPNEUMONIA [None]
  - OFF LABEL USE [None]
  - BLOOD GLUCOSE INCREASED [None]
